FAERS Safety Report 4917566-5 (Version None)
Quarter: 2006Q1

REPORT INFORMATION
  Report Type: 
  Country: None (occurrence: None)
  Receive Date: 20060221
  Receipt Date: 20050426
  Transmission Date: 20060701
  Serious: Yes (Hospitalization)
  Sender: FDA-Public Use
  Company Number: US-MERCK-0504USA04847

PATIENT
  Age: 61 Year
  Sex: Female

DRUGS (14)
  1. VIOXX [Suspect]
     Indication: ARTHRITIS
     Route: 048
     Dates: end: 20040901
  2. METHOTREXATE [Concomitant]
     Route: 065
  3. PREDNISONE [Concomitant]
     Route: 065
  4. IMDUR [Concomitant]
     Route: 065
  5. MAXZIDE [Concomitant]
     Route: 065
  6. LIPITOR [Concomitant]
     Route: 065
  7. LIPITOR [Concomitant]
     Route: 065
  8. METOPROLOL [Concomitant]
     Route: 065
  9. ASPIRIN [Concomitant]
     Route: 065
  10. LOPRESSOR [Concomitant]
     Route: 065
  11. FOLIC ACID [Concomitant]
     Route: 065
  12. PREMARIN [Concomitant]
     Route: 065
  13. VITAMINS (UNSPECIFIED) [Concomitant]
     Route: 065
  14. BENICAR HCT [Concomitant]
     Indication: HYPERTENSION
     Route: 065

REACTIONS (7)
  - BRADYCARDIA [None]
  - CAROTID ARTERY STENOSIS [None]
  - CHEST PAIN [None]
  - DIARRHOEA [None]
  - DIZZINESS [None]
  - TACHYCARDIA [None]
  - TRANSIENT ISCHAEMIC ATTACK [None]
